FAERS Safety Report 8071671-6 (Version None)
Quarter: 2012Q1

REPORT INFORMATION
  Report Type: 
  Country: None (occurrence: None)
  Receive Date: 20120125
  Receipt Date: 20120110
  Transmission Date: 20120608
  Serious: Yes (Hospitalization)
  Sender: FDA-Public Use
  Company Number: GR-WATSON-2012-00553

PATIENT
  Age: 65 Year
  Sex: Male

DRUGS (1)
  1. FLUTAMIDE [Suspect]
     Indication: PROSTATE CANCER
     Dosage: UNK

REACTIONS (6)
  - HEPATIC STEATOSIS [None]
  - HEPATOMEGALY [None]
  - HEPATIC FIBROSIS [None]
  - JAUNDICE CHOLESTATIC [None]
  - HEPATITIS CHOLESTATIC [None]
  - LIVER FUNCTION TEST ABNORMAL [None]
